FAERS Safety Report 9519528 (Version 2)
Quarter: 2013Q3

REPORT INFORMATION
  Report Type: Spontaneous
  Country: JP (occurrence: JP)
  Receive Date: 20130912
  Receipt Date: 20130912
  Transmission Date: 20140515
  Serious: Yes (Death, Other)
  Sender: FDA-Public Use
  Company Number: JP-PFIZER INC-2013214756

PATIENT
  Age: 82 Year
  Sex: Male
  Weight: 54.4 kg

DRUGS (2)
  1. ZYVOX [Suspect]
     Indication: PNEUMONIA STAPHYLOCOCCAL
     Dosage: 1200 MG DAILY
     Route: 041
     Dates: start: 20130709, end: 20130720
  2. CEFTRIAXONE SODIUM [Concomitant]
     Dosage: UNK

REACTIONS (3)
  - Pneumonia staphylococcal [Fatal]
  - Disseminated intravascular coagulation [Fatal]
  - Platelet count decreased [Recovering/Resolving]
